FAERS Safety Report 6045639-5 (Version None)
Quarter: 2009Q1

REPORT INFORMATION
  Report Type: 
  Country: None (occurrence: None)
  Receive Date: 20090121
  Receipt Date: 20090115
  Transmission Date: 20090719
  Serious: Yes (Hospitalization)
  Sender: FDA-Public Use
  Company Number: AU-ABBOTT-09P-008-0497851-00

PATIENT
  Age: 80 Year
  Sex: Female

DRUGS (4)
  1. VALPROATE SODIUM [Suspect]
     Indication: COMPLEX PARTIAL SEIZURES
     Route: 048
     Dates: end: 20081201
  2. VALPROATE SODIUM [Suspect]
     Route: 048
     Dates: start: 20081201
  3. ASPIRIN AND DIPYRIDAMOLE [Concomitant]
     Indication: DRUG USE FOR UNKNOWN INDICATION
     Dosage: 200/25 MG
     Route: 048
  4. KEPPRA [Concomitant]
     Indication: DRUG USE FOR UNKNOWN INDICATION
     Route: 048
     Dates: start: 20081129, end: 20081210

REACTIONS (3)
  - BLOOD ALBUMIN DECREASED [None]
  - SOMNOLENCE [None]
  - VITAMIN B12 INCREASED [None]
